FAERS Safety Report 4726435-5 (Version None)
Quarter: 2005Q3

REPORT INFORMATION
  Report Type: 
  Country: None (occurrence: None)
  Receive Date: 20050726
  Receipt Date: 20050408
  Transmission Date: 20060218
  Serious: No
  Sender: FDA-Public Use
  Company Number: REM_00103_2005

PATIENT
  Age: 49 Year
  Sex: Female
  Weight: 55.9 kg

DRUGS (12)
  1. REMODULIN [Suspect]
     Indication: PULMONARY HYPERTENSION
     Dosage: 72.2 NG/KG/MIN CONTINUOUS SC
     Route: 058
     Dates: start: 20021007, end: 20050422
  2. FUROSEMIDE [Concomitant]
  3. COUMADIN [Concomitant]
  4. KLOR-CON [Concomitant]
  5. PLO GEL FORMULA D [Concomitant]
  6. NEURONTIN [Concomitant]
  7. PREMPRO [Concomitant]
  8. ALL-IN-ONE-TAB [Concomitant]
  9. CALCIUM GLUCONATE [Concomitant]
  10. VITAMIN D [Concomitant]
  11. FOSAMAX [Concomitant]
  12. OXYGEN [Concomitant]

REACTIONS (2)
  - INFUSION SITE PAIN [None]
  - INJECTION SITE HAEMORRHAGE [None]
